FAERS Safety Report 8564514-5 (Version None)
Quarter: 2012Q3

REPORT INFORMATION
  Report Type: 
  Country: None (occurrence: None)
  Receive Date: 20120803
  Receipt Date: 20120723
  Transmission Date: 20120928
  Serious: Yes (Hospitalization)
  Sender: FDA-Public Use
  Company Number: US-ASTRAZENECA-2011SE27524

PATIENT
  Age: 58 Year
  Sex: Female

DRUGS (4)
  1. TOPROL-XL [Suspect]
     Route: 048
     Dates: end: 20110515
  2. NEXIUM [Suspect]
     Route: 048
     Dates: end: 20110515
  3. TOPROL-XL [Suspect]
     Route: 048
  4. NEXIUM [Suspect]
     Route: 048

REACTIONS (9)
  - STRESS [None]
  - GOUT [None]
  - MUSCULOSKELETAL STIFFNESS [None]
  - MALAISE [None]
  - URINARY TRACT INFECTION [None]
  - HEADACHE [None]
  - DRUG DOSE OMISSION [None]
  - PYREXIA [None]
  - NEUROPATHY PERIPHERAL [None]
